FAERS Safety Report 10626964 (Version 1)
Quarter: 2014Q4

REPORT INFORMATION
  Report Type: Spontaneous
  Country: US (occurrence: US)
  Receive Date: 20141204
  Receipt Date: 20141204
  Transmission Date: 20150529
  Serious: Yes (Other)
  Sender: FDA-Public Use
  Company Number: US-FRI-1000072712

PATIENT
  Sex: Male

DRUGS (1)
  1. DALIRESP [Suspect]
     Active Substance: ROFLUMILAST

REACTIONS (3)
  - Failure to thrive [Recovered/Resolved]
  - Weight decreased [Recovered/Resolved]
  - Diarrhoea [Recovered/Resolved]
